FAERS Safety Report 4271541-5 (Version None)
Quarter: 2004Q1

REPORT INFORMATION
  Report Type: 
  Country: None (occurrence: None)
  Receive Date: 20040113
  Receipt Date: 20031230
  Transmission Date: 20041129
  Serious: Yes (Other)
  Sender: FDA-Public Use
  Company Number: DE-JNJFOC-20031002457

PATIENT
  Age: 46 Year
  Sex: Male

DRUGS (3)
  1. RISPERDAL [Suspect]
     Indication: SCHIZOPHRENIA
     Dosage: 50 MG, 1 IN 2 WEEK, INTRA-MUSCULAR
     Route: 030
     Dates: start: 20030901
  2. RISPERDAL [Suspect]
     Indication: SCHIZOPHRENIA
     Dosage: 8 MG, IN 1 DAY, ORAL
     Route: 048
     Dates: start: 20030901
  3. DEPAKENE [Concomitant]

REACTIONS (2)
  - HEPATIC ENZYME INCREASED [None]
  - LEUKOPENIA [None]
